FAERS Safety Report 8181359-9 (Version None)
Quarter: 2012Q1

REPORT INFORMATION
  Report Type: 
  Country: None (occurrence: None)
  Receive Date: 20120302
  Receipt Date: 20120227
  Transmission Date: 20120608
  Serious: No
  Sender: FDA-Public Use
  Company Number: US-PFIZER INC-2012051717

PATIENT
  Sex: Male
  Weight: 90.703 kg

DRUGS (5)
  1. CELEBREX [Suspect]
     Indication: ARTHRALGIA
     Dosage: 200 MG, 1X/DAY
     Route: 048
     Dates: start: 20120224, end: 20120225
  2. LISINOPRIL [Concomitant]
     Dosage: 40 MG, UNK
  3. HYDROCHLOROTHIAZIDE [Concomitant]
     Indication: HYPERTENSION
     Dosage: 25 MG, UNK
  4. GLYCERIN [Concomitant]
     Dosage: UNK
  5. METOPROLOL [Concomitant]
     Dosage: 100 MG, UNK

REACTIONS (2)
  - HAEMOPTYSIS [None]
  - FATIGUE [None]
